FAERS Safety Report 6435003-9 (Version None)
Quarter: 2009Q4

REPORT INFORMATION
  Report Type: 
  Country: None (occurrence: None)
  Receive Date: 20091110
  Receipt Date: 20091028
  Transmission Date: 20100525
  Serious: Yes (Other)
  Sender: FDA-Public Use
  Company Number: PHHY2009MX47477

PATIENT
  Age: 75 Year
  Sex: Female

DRUGS (3)
  1. DIOVAN HCT [Suspect]
     Indication: HYPERTENSION
     Dosage: 1 TABLET/DAY
  2. TENORMIN [Concomitant]
  3. AMLODIPINE [Concomitant]

REACTIONS (1)
  - PULMONARY EMBOLISM [None]
